FAERS Safety Report 13917967 (Version 5)
Quarter: 2021Q4

REPORT INFORMATION
  Report Type: Spontaneous
  Country: US (occurrence: US)
  Receive Date: 20170829
  Receipt Date: 20211105
  Transmission Date: 20220303
  Serious: No
  Sender: FDA-Public Use
  Company Number: US-SA-2016SA176424

PATIENT
  Age: 52 Year
  Sex: Female
  Weight: 202 kg

DRUGS (25)
  1. FABRAZYME [Suspect]
     Active Substance: AGALSIDASE BETA
     Indication: Fabry^s disease
     Dosage: 80 MG,QOW
     Route: 041
     Dates: start: 20160902
  2. FABRAZYME [Suspect]
     Active Substance: AGALSIDASE BETA
     Dosage: 92 MG, QOW
     Route: 041
     Dates: start: 20180115
  3. FABRAZYME [Suspect]
     Active Substance: AGALSIDASE BETA
     Dosage: 92 MG, QOW
     Route: 041
     Dates: start: 20210413
  4. BACTRIM [Concomitant]
     Active Substance: SULFAMETHOXAZOLE\TRIMETHOPRIM
  5. DIPHENHYDRAMINE [Concomitant]
     Active Substance: DIPHENHYDRAMINE
  6. HEPARIN [Concomitant]
     Active Substance: HEPARIN SODIUM
  7. LIDOCAINE\PRILOCAINE [Concomitant]
     Active Substance: LIDOCAINE\PRILOCAINE
  8. SODIUM CHLORIDE [Concomitant]
     Active Substance: SODIUM CHLORIDE
  9. EPINEPHRINE [Concomitant]
     Active Substance: EPINEPHRINE
  10. DICLOFENAC [Concomitant]
     Active Substance: DICLOFENAC
  11. IBUPROFEN [Concomitant]
     Active Substance: IBUPROFEN
  12. PANTOPRAZOLE [Concomitant]
     Active Substance: PANTOPRAZOLE
  13. LOSARTAN [Concomitant]
     Active Substance: LOSARTAN
  14. SERTRALINE [Concomitant]
     Active Substance: SERTRALINE HYDROCHLORIDE
  15. DOCUSATE [Concomitant]
     Active Substance: DOCUSATE
  16. HYDROCHLOROTHIAZIDE\METOPROLOL [Concomitant]
     Active Substance: HYDROCHLOROTHIAZIDE\METOPROLOL
  17. LIPITOR [Concomitant]
     Active Substance: ATORVASTATIN CALCIUM
  18. NITROSTAT [Concomitant]
     Active Substance: NITROGLYCERIN
  19. CYCLOBENZAPRINE [Concomitant]
     Active Substance: CYCLOBENZAPRINE
  20. AMITRIPTYLINE [Concomitant]
     Active Substance: AMITRIPTYLINE
  21. LEVOTHYROXINE [Concomitant]
     Active Substance: LEVOTHYROXINE
  22. LORAZEPAM [Concomitant]
     Active Substance: LORAZEPAM
  23. COENZYME Q10 [Concomitant]
     Active Substance: DIETARY SUPPLEMENT\UBIDECARENONE
  24. OMEGA 3 [FISH OIL;VITAMIN E NOS] [Concomitant]
  25. STERILE WATER [Concomitant]
     Active Substance: WATER

REACTIONS (5)
  - Malaise [Not Recovered/Not Resolved]
  - Fatigue [Not Recovered/Not Resolved]
  - Hypertension [Recovered/Resolved]
  - Inappropriate schedule of product administration [Unknown]
  - Product dose omission issue [Unknown]

NARRATIVE: CASE EVENT DATE: 20160901
